FAERS Safety Report 9909753 (Version 1)
Quarter: 2014Q1

REPORT INFORMATION
  Report Type: Spontaneous
  Country: US (occurrence: None)
  Receive Date: 20140218
  Receipt Date: 20140218
  Transmission Date: 20141002
  Serious: Yes (Life-Threatening)
  Sender: FDA-Public Use
  Company Number: None

PATIENT
  Age: 59 Year
  Sex: Female
  Weight: 40.82 kg

DRUGS (10)
  1. KETOCONAZOLE [Suspect]
     Indication: CANDIDA INFECTION
     Route: 048
     Dates: start: 20131001, end: 20131014
  2. MULTI [Concomitant]
  3. OMEGA3 [Concomitant]
  4. E [Concomitant]
  5. VIT C [Concomitant]
  6. MSM [Concomitant]
  7. HAWTHORN [Concomitant]
  8. CALCIUM [Concomitant]
  9. CAPRILIC ACID [Concomitant]
  10. OLIVE LEAF [Concomitant]

REACTIONS (6)
  - Vomiting [None]
  - Constipation [None]
  - Abnormal faeces [None]
  - Heart rate abnormal [None]
  - Dyspepsia [None]
  - Yellow skin [None]
